FAERS Safety Report 7820359-2 (Version None)
Quarter: 2011Q4

REPORT INFORMATION
  Report Type: 
  Country: None (occurrence: None)
  Receive Date: 20111018
  Receipt Date: 20111012
  Transmission Date: 20120403
  Serious: Yes (Other)
  Sender: FDA-Public Use
  Company Number: CA-AMGEN-CANSP2011052766

PATIENT
  Age: 45 Year
  Sex: Male

DRUGS (1)
  1. XGEVA [Suspect]
     Indication: RENAL CELL CARCINOMA
     Dosage: 120 MG, Q4WK
     Dates: start: 20110601, end: 20110901

REACTIONS (1)
  - OSTEONECROSIS OF JAW [None]
